FAERS Safety Report 17479121 (Version 1)
Quarter: 2020Q1

REPORT INFORMATION
  Report Type: Report from Study
  Country: US (occurrence: US)
  Receive Date: 20200228
  Receipt Date: 20200228
  Transmission Date: 20200409
  Serious: Yes (Other)
  Sender: FDA-Public Use
  Company Number: US-JNJFOC-20191127864

PATIENT
  Sex: Male

DRUGS (1)
  1. STELARA [Suspect]
     Active Substance: USTEKINUMAB
     Indication: CROHN^S DISEASE
     Dosage: THE PATIENT RECEIVED 4TH INJECTION OF USTEKINUMAB  90 MG SUBCUTANEOUS INJECTION ON 26-NOV-2019
     Route: 058
     Dates: start: 20190405

REACTIONS (4)
  - Diarrhoea [Recovered/Resolved]
  - Nasopharyngitis [Recovering/Resolving]
  - Aortic aneurysm [Unknown]
  - Gastric disorder [Recovered/Resolved]

NARRATIVE: CASE EVENT DATE: 2019
